FAERS Safety Report 9508981 (Version 2)
Quarter: 2014Q3

REPORT INFORMATION
  Report Type: Spontaneous
  Country: US (occurrence: US)
  Receive Date: 20130909
  Receipt Date: 20140908
  Transmission Date: 20150326
  Serious: No
  Sender: FDA-Public Use
  Company Number: US-BRISTOL-MYERS SQUIBB COMPANY-19056522

PATIENT
  Age: 62 Year
  Sex: Female
  Weight: 64.85 kg

DRUGS (2)
  1. ABILIFY [Suspect]
     Active Substance: ARIPIPRAZOLE
     Indication: MAJOR DEPRESSION
     Route: 048
     Dates: start: 201212
  2. ZOLOFT [Concomitant]
     Active Substance: SERTRALINE HYDROCHLORIDE
     Route: 048

REACTIONS (4)
  - Increased appetite [Unknown]
  - Weight increased [Unknown]
  - Stress [Unknown]
  - Drug dose omission [Unknown]
